FAERS Safety Report 4751654-1 (Version None)
Quarter: 2005Q3

REPORT INFORMATION
  Report Type: 
  Country: None (occurrence: None)
  Receive Date: 20050822
  Receipt Date: 20050809
  Transmission Date: 20060218
  Serious: Yes (Other)
  Sender: FDA-Public Use
  Company Number: 2005112550

PATIENT
  Age: 69 Year
  Sex: Female

DRUGS (3)
  1. ZIPRASIDONE (CAPS)  (ZIPRASIDONE) [Suspect]
     Indication: AGGRESSION
     Dosage: 80 MG, ORAL
     Route: 048
  2. ZIPRASIDONE (CAPS)  (ZIPRASIDONE) [Suspect]
     Indication: DELUSION
     Dosage: 80 MG, ORAL
     Route: 048
  3. ZIPRASIDONE (CAPS)  (ZIPRASIDONE) [Suspect]
     Indication: HALLUCINATION, AUDITORY
     Dosage: 80 MG, ORAL
     Route: 048

REACTIONS (14)
  - ALANINE AMINOTRANSFERASE INCREASED [None]
  - ASPARTATE AMINOTRANSFERASE INCREASED [None]
  - BILIRUBIN CONJUGATED INCREASED [None]
  - BLOOD ALKALINE PHOSPHATASE INCREASED [None]
  - BLOOD BILIRUBIN INCREASED [None]
  - BLOOD IMMUNOGLOBULIN E INCREASED [None]
  - BLOOD LACTATE DEHYDROGENASE INCREASED [None]
  - BODY TEMPERATURE INCREASED [None]
  - EOSINOPHIL PERCENTAGE INCREASED [None]
  - FAECES PALE [None]
  - GAMMA-GLUTAMYLTRANSFERASE INCREASED [None]
  - HEART RATE INCREASED [None]
  - JAUNDICE [None]
  - RASH [None]
